FAERS Safety Report 9775630 (Version 1)
Quarter: 2013Q4

REPORT INFORMATION
  Report Type: Spontaneous
  Country: JP (occurrence: JP)
  Receive Date: 20131220
  Receipt Date: 20131220
  Transmission Date: 20140711
  Serious: Yes (Death)
  Sender: FDA-Public Use
  Company Number: JP-MALLINCKRODT-T201305161

PATIENT
  Age: 72 Year
  Sex: Male
  Weight: 45 kg

DRUGS (8)
  1. METHADONE [Suspect]
     Indication: CANCER PAIN
     Dosage: 5 MG, (15 MG DAILY DOSE)
     Route: 048
     Dates: start: 20130703, end: 20130712
  2. OXINORM [Concomitant]
     Dosage: 2.5 MG, PRN
     Route: 048
     Dates: start: 20130702
  3. LOXONIN [Concomitant]
     Dosage: 60 MG, UNK
     Route: 048
     Dates: end: 20130712
  4. TAKEPRON [Concomitant]
     Dosage: 15 MG, UNK
     Route: 048
     Dates: end: 20130712
  5. DEPAKENE-R [Concomitant]
     Dosage: 800 MG, UNK
     Route: 048
     Dates: end: 20130712
  6. RISPERIDONE [Concomitant]
     Dosage: 20 MG, UNK
     Route: 048
     Dates: end: 20130712
  7. SEROQUEL [Concomitant]
     Dosage: 12.5 MG, UNK
     Route: 048
     Dates: start: 20130703, end: 20130712
  8. RINDERON [Concomitant]
     Dosage: 2 MG, UNK
     Route: 048
     Dates: start: 20130704, end: 20130712

REACTIONS (1)
  - Lung neoplasm malignant [Fatal]
